FAERS Safety Report 7368508-7 (Version None)
Quarter: 2011Q1

REPORT INFORMATION
  Report Type: 
  Country: None (occurrence: None)
  Receive Date: 20110323
  Receipt Date: 20110316
  Transmission Date: 20110831
  Serious: Yes (Hospitalization, Other)
  Sender: FDA-Public Use
  Company Number: FR-GENZYME-FLUD-1000292

PATIENT
  Sex: Female

DRUGS (13)
  1. MABTHERA [Suspect]
     Dosage: 0.016 UNK, QD
     Route: 042
  2. FLUDARA [Suspect]
     Indication: FOLLICLE CENTRE LYMPHOMA, FOLLICULAR GRADE I, II, III
     Dosage: UNK
     Route: 042
     Dates: start: 20090601
  3. FLUDARA [Suspect]
     Dosage: UNK
     Route: 042
  4. MABTHERA [Suspect]
     Dosage: 0.016 UNK, QD
     Route: 042
  5. FLUDARA [Suspect]
     Dosage: UNK
     Route: 042
  6. FLUDARA [Suspect]
     Dosage: UNK
     Route: 042
     Dates: end: 20091001
  7. RYTHMOL [Suspect]
     Indication: ARRHYTHMIA
     Dosage: UNK
     Route: 048
  8. MABTHERA [Suspect]
     Dosage: 0.016 UNK, QD
     Route: 042
     Dates: end: 20091223
  9. MABTHERA [Suspect]
     Indication: FOLLICLE CENTRE LYMPHOMA, FOLLICULAR GRADE I, II, III
     Dosage: 0.016 UNK, QD
     Route: 042
     Dates: start: 20090601
  10. FLUDARA [Suspect]
     Dosage: UNK
     Route: 042
  11. MABTHERA [Suspect]
     Dosage: 0.016 UNK, QD
     Route: 042
  12. FLUDARA [Suspect]
     Dosage: UNK
     Route: 042
  13. MABTHERA [Suspect]
     Dosage: 0.016 UNK, QD
     Route: 042

REACTIONS (4)
  - CARDIOGENIC SHOCK [None]
  - RESPIRATORY DISORDER [None]
  - DYSPNOEA [None]
  - HYPERTENSION [None]
